FAERS Safety Report 25161014 (Version 2)
Quarter: 2025Q2

REPORT INFORMATION
  Report Type: Report from Study
  Country: US (occurrence: US)
  Receive Date: 20250404
  Receipt Date: 20250604
  Transmission Date: 20250716
  Serious: No
  Sender: DAIICHI
  Company Number: US-DAIICHI SANKYO, INC.-DS-2025-133280-USAA

PATIENT
  Age: 43 Year
  Sex: Female

DRUGS (2)
  1. ENHERTU [Suspect]
     Active Substance: FAM-TRASTUZUMAB DERUXTECAN-NXKI
     Indication: HER2 low breast cancer
     Dosage: UNK UNK, ONCE EVERY 3 WK
     Route: 042
     Dates: start: 202412
  2. ENHERTU [Suspect]
     Active Substance: FAM-TRASTUZUMAB DERUXTECAN-NXKI
     Indication: Breast cancer metastatic

REACTIONS (9)
  - Fatigue [Unknown]
  - Asthenia [Unknown]
  - Incorrect product administration duration [Unknown]
  - Ureteral stent insertion [Unknown]
  - Brain fog [Unknown]
  - Migraine [Unknown]
  - Rash [Unknown]
  - Constipation [Unknown]
  - Adverse drug reaction [Unknown]

NARRATIVE: CASE EVENT DATE: 20241201
